FAERS Safety Report 9530272 (Version 1)
Quarter: 2013Q3

REPORT INFORMATION
  Report Type: Spontaneous
  Country: US (occurrence: US)
  Receive Date: 20130917
  Receipt Date: 20130917
  Transmission Date: 20140515
  Serious: Yes (Other)
  Sender: FDA-Public Use
  Company Number: US-RB-058353-13

PATIENT
  Age: 29 Year
  Sex: Female

DRUGS (7)
  1. SUBOXONE FILM [Suspect]
     Dosage: SUBOXONE FILM; CUTTING THE FILM TO ACHIEVE DOSING REGIMEN
     Route: 060
     Dates: start: 201108, end: 201209
  2. SUBOXONE FILM [Suspect]
     Indication: DRUG DEPENDENCE
     Dosage: SUBOXONE FILM; THE PATIENT WAS PRESCRIBED 55 FILMS/MONTH. SHE WAS TAKING 4 MG 3-4 TIMES DAILY
     Route: 060
     Dates: start: 20130826
  3. BUPRENORPHINE GENERIC [Suspect]
     Indication: DRUG DEPENDENCE
     Dosage: CUTTING THE TABLET TO ACHIEVE PRESCRIBED DOSING REGIMEN
     Route: 060
     Dates: start: 201209, end: 20130826
  4. TOBACCO [Suspect]
     Indication: NICOTINE DEPENDENCE
     Dosage: DOSING REGIMEN: 20 CIGARETTES/3 DAYS
     Route: 055
  5. ZANTAC [Suspect]
     Indication: GASTROOESOPHAGEAL REFLUX DISEASE
     Dosage: 1 TABLET DAILY
     Route: 048
  6. SUBUTEX [Suspect]
     Indication: DRUG DEPENDENCE
     Dosage: DOSING DETAILS UNKNOWN
     Route: 065
  7. PRENATAL VITAMINS [Concomitant]
     Indication: PREGNANCY
     Dosage: 1 TABLET DAILY
     Route: 048
     Dates: start: 2012

REACTIONS (3)
  - Wrong technique in drug usage process [Not Recovered/Not Resolved]
  - Maternal exposure during pregnancy [Recovered/Resolved]
  - Foetal distress syndrome [Recovered/Resolved]
